FAERS Safety Report 7460121-6 (Version None)
Quarter: 2011Q2

REPORT INFORMATION
  Report Type: 
  Country: None (occurrence: None)
  Receive Date: 20110505
  Receipt Date: 20110426
  Transmission Date: 20111010
  Serious: Yes (Hospitalization)
  Sender: FDA-Public Use
  Company Number: CO-ELI_LILLY_AND_COMPANY-CO201104007547

PATIENT
  Age: 78 Year
  Sex: Female

DRUGS (18)
  1. METFORMIN [Concomitant]
     Dosage: 1 DF, BID
  2. ENALAPRIL [Concomitant]
     Dosage: UNK, BID
  3. ALISKIREN [Concomitant]
     Dosage: 300 MG, QD
  4. SPIRONOLACTONE [Concomitant]
     Dosage: UNK, QD
  5. BECLOMETHASONE [Concomitant]
     Dosage: 3 DF, UNK
  6. ROSUVASTATIN CALCIUM [Concomitant]
     Dosage: 1 DF, QD
  7. THEOPHYLLINE [Concomitant]
     Dosage: 125 MG, EACH EVENING
  8. FUROSEMIDE [Concomitant]
     Dosage: 1 DF, QD
  9. FLUCONAZOLE [Concomitant]
     Dosage: 1 DF, OTHER
  10. GLYBURIDE [Concomitant]
     Dosage: UNK, BID
  11. CARVEDILOL [Concomitant]
     Dosage: 12.5 MG, QD
  12. IPRATROPIUM BROMIDE [Concomitant]
     Dosage: 3 DF, PRN
  13. BYETTA [Suspect]
     Indication: TYPE 2 DIABETES MELLITUS
     Dosage: 5 UG, BID
     Route: 058
     Dates: start: 20110224, end: 20110321
  14. ISOCARD [Concomitant]
     Indication: CHEST PAIN
     Dosage: 1 DF, UNK
  15. ASPIRIN [Concomitant]
     Dosage: 100 MG, QD
  16. AMIODARONE [Concomitant]
     Dosage: 1 DF, QD
  17. LOVASTATIN [Concomitant]
     Dosage: 1 DF, QD
  18. OMEPRAZOL [Concomitant]
     Dosage: 1 DF, UNK

REACTIONS (8)
  - ABDOMINAL PAIN [None]
  - DEHYDRATION [None]
  - CHEST PAIN [None]
  - CORONARY ARTERIAL STENT INSERTION [None]
  - DIARRHOEA [None]
  - CATHETERISATION CARDIAC [None]
  - ANGIOPLASTY [None]
  - PYREXIA [None]
